FAERS Safety Report 5223009-7 (Version None)
Quarter: 2007Q1

REPORT INFORMATION
  Report Type: 
  Country: None (occurrence: None)
  Receive Date: 20070124
  Receipt Date: 20070115
  Transmission Date: 20070707
  Serious: No
  Sender: FDA-Public Use
  Company Number: 2007-152551-NL

PATIENT
  Age: 27 Year
  Sex: Female

DRUGS (1)
  1. ETONOGESTREL [Suspect]
     Indication: CONTRACEPTION
     Dosage: DF
     Dates: start: 20060627

REACTIONS (4)
  - BENIGN INTRACRANIAL HYPERTENSION [None]
  - EYE DISORDER [None]
  - LYMPHOMA [None]
  - PAPILLOEDEMA [None]
